FAERS Safety Report 4502848-1 (Version None)
Quarter: 2004Q4

REPORT INFORMATION
  Report Type: 
  Country: None (occurrence: None)
  Receive Date: 20041112
  Receipt Date: 20041027
  Transmission Date: 20050328
  Serious: Yes (Other)
  Sender: FDA-Public Use
  Company Number: 206922

PATIENT
  Age: 53 Year
  Sex: Female
  Weight: 68.0396 kg

DRUGS (8)
  1. AVONEX [Suspect]
     Indication: MULTIPLE SCLEROSIS
     Dosage: 30 MCG QW IM
     Route: 030
     Dates: start: 20030601, end: 20031201
  2. AVONEX [Suspect]
     Indication: MULTIPLE SCLEROSIS
     Dosage: 30 MCG QW IM
     Route: 030
     Dates: start: 20031201, end: 20040101
  3. AVONEX [Suspect]
     Indication: MULTIPLE SCLEROSIS
     Dosage: 30 MCG QW IM
     Route: 030
     Dates: start: 20040101
  4. PEPCID [Concomitant]
  5. HYDROCHLOROTHIAZIDE [Concomitant]
  6. KLONOPIN [Concomitant]
  7. PREMARIN [Concomitant]
  8. BACLOFEN [Concomitant]

REACTIONS (7)
  - ANXIETY [None]
  - ARTHRALGIA [None]
  - DEPRESSION [None]
  - HYPOAESTHESIA [None]
  - INFLUENZA LIKE ILLNESS [None]
  - MALIGNANT MELANOMA [None]
  - MEMORY IMPAIRMENT [None]
